FAERS Safety Report 6907372-4 (Version None)
Quarter: 2010Q3

REPORT INFORMATION
  Report Type: 
  Country: None (occurrence: None)
  Receive Date: 20100802
  Receipt Date: 20100720
  Transmission Date: 20110219
  Serious: Yes (Hospitalization)
  Sender: FDA-Public Use
  Company Number: IDA-00389

PATIENT
  Age: 41 Year
  Sex: Female

DRUGS (5)
  1. PROPRANOLOL [Suspect]
  2. CLONAZEPAM [Suspect]
  3. FLUPENTIXOL DIHYDROCHLORIDE [Suspect]
     Indication: PRODUCT USED FOR UNKNOWN INDICATION
  4. OXAZEPAM [Suspect]
     Indication: PRODUCT USED FOR UNKNOWN INDICATION
  5. VALPROATE SODIUM [Suspect]
     Indication: PRODUCT USED FOR UNKNOWN INDICATION

REACTIONS (8)
  - AGITATION [None]
  - BRADYCARDIA [None]
  - DISORIENTATION [None]
  - DRUG INEFFECTIVE [None]
  - DRUG TOXICITY [None]
  - HYPERAMMONAEMIA [None]
  - METABOLIC ENCEPHALOPATHY [None]
  - MULTIPLE DRUG OVERDOSE INTENTIONAL [None]
